FAERS Safety Report 9665911 (Version 1)
Quarter: 2013Q4

REPORT INFORMATION
  Report Type: Report from Study
  Country: US (occurrence: US)
  Receive Date: 20131104
  Receipt Date: 20131104
  Transmission Date: 20140711
  Serious: Yes (Death)
  Sender: FDA-Public Use
  Company Number: US-SA-2013SA112221

PATIENT
  Sex: Female

DRUGS (4)
  1. CYCLOPHOSPHAMIDE [Suspect]
     Indication: BREAST CANCER
     Dosage: OVER 15-30  MIN
     Route: 042
  2. DOCETAXEL [Suspect]
     Indication: BREAST CANCER
     Dosage: OVER 1 HOUR
     Route: 042
  3. TRASTUZUMAB [Suspect]
     Indication: BREAST CANCER
     Dosage: LOADING DOSE OVER 90  MIN
     Route: 042
  4. TRASTUZUMAB [Suspect]
     Indication: BREAST CANCER
     Dosage: OVER 30-60  MIN, ON DAY 1,8 AND 15.
     Route: 042

REACTIONS (1)
  - Aspiration [Fatal]
